FAERS Safety Report 19809432 (Version 3)
Quarter: 2023Q2

REPORT INFORMATION
  Report Type: Spontaneous
  Country: US (occurrence: US)
  Receive Date: 20210908
  Receipt Date: 20230608
  Transmission Date: 20230722
  Serious: Yes (Other)
  Sender: FDA-Public Use
  Company Number: US-PFIZER INC-202101127851

PATIENT
  Age: 8 Year
  Sex: Male

DRUGS (1)
  1. BENEFIX [Suspect]
     Active Substance: COAGULATION FACTOR IX RECOMBINANT HUMAN\ISOPROPYL ALCOHOL
     Indication: Haemorrhage
     Dosage: INFUSE BENEFIX 2900 UNITS (+5%) = 100 UNITS/KG DAILY ON DEMAND FOR A BLEED

REACTIONS (1)
  - Haemorrhage [Unknown]
